FAERS Safety Report 6192769-3 (Version None)
Quarter: 2009Q2

REPORT INFORMATION
  Report Type: 
  Country: None (occurrence: None)
  Receive Date: 20090518
  Receipt Date: 20080904
  Transmission Date: 20091009
  Serious: No
  Sender: FDA-Public Use
  Company Number: US-TYCO HEALTHCARE/MALLINCKRODT-T200801450

PATIENT

DRUGS (10)
  1. ACETAMINOPHEN AND HYDROCODONE BITARTRATE [Suspect]
     Indication: BACK PAIN
     Dosage: UNK, QD
     Route: 048
     Dates: start: 20071201
  2. HYDROCODONE BITARTRATE AND ACETAMINOPHEN [Suspect]
     Indication: BACK PAIN
     Dosage: 1/2 TO 1 TABLET, QD
     Route: 048
     Dates: start: 20000101, end: 20070901
  3. HYDROCODONE BITARTRATE AND ACETAMINOPHEN [Suspect]
     Dosage: 1/2 TO 1 TABLET, QD
     Route: 048
  4. PROTONIX                           /01263201/ [Suspect]
     Indication: DUODENAL ULCER
     Dosage: TAKEN FOR A FEW WEEKS
     Route: 048
     Dates: start: 20080701, end: 20080701
  5. PRILOSEC [Suspect]
     Indication: DUODENAL ULCER
     Dosage: UNK
     Route: 048
     Dates: start: 20080701
  6. PEPCID AC [Suspect]
     Indication: DUODENAL ULCER
     Route: 048
  7. MAALOX                             /00082501/ [Suspect]
     Indication: DUODENAL ULCER
     Dosage: UNK
     Route: 048
  8. ASPIRIN [Suspect]
     Dosage: UNK
     Route: 048
  9. TOPICAL PRODUCTS FOR JOINT AND MUSCULAR PAIN [Concomitant]
     Indication: ARTHRALGIA
     Route: 061
  10. TOPICAL PRODUCTS FOR JOINT AND MUSCULAR PAIN [Concomitant]
     Indication: MYALGIA

REACTIONS (4)
  - DYSURIA [None]
  - GROIN PAIN [None]
  - PROSTATIC SPECIFIC ANTIGEN INCREASED [None]
  - TESTICULAR SWELLING [None]
